FAERS Safety Report 4746442-6 (Version None)
Quarter: 2005Q3

REPORT INFORMATION
  Report Type: 
  Country: None (occurrence: None)
  Receive Date: 20050816
  Receipt Date: 20050816
  Transmission Date: 20060218
  Serious: Yes (Hospitalization)
  Sender: FDA-Public Use
  Company Number: None

PATIENT
  Age: 24 Year
  Sex: Male
  Weight: 72 kg

DRUGS (10)
  1. BEVACIZUMAB - GENENTECH [Suspect]
     Indication: GASTROOESOPHAGEAL CANCER
     Dosage: 15MG/KG IV DL EVERY 21 D
     Route: 042
     Dates: start: 20050804
  2. BEVACIZUMAB - GENENTECH [Suspect]
     Indication: METASTASIS
     Dosage: 15MG/KG IV DL EVERY 21 D
     Route: 042
     Dates: start: 20050804
  3. OXALIPLATIN [Suspect]
     Indication: GASTROOESOPHAGEAL CANCER
     Dosage: 75MG/M2 IV DL EVERY 21D
     Route: 042
     Dates: start: 20050804
  4. OXALIPLATIN [Suspect]
     Indication: METASTASIS
     Dosage: 75MG/M2 IV DL EVERY 21D
     Route: 042
     Dates: start: 20050804
  5. DOCETAXEL - SANOFI-AVENTIS [Suspect]
     Dosage: 70 MG/M2 IV DL EVERY 21 D
     Route: 042
     Dates: start: 20050804
  6. LEXAPRO [Concomitant]
  7. ZITHROMAX [Concomitant]
  8. CARAFATE [Concomitant]
  9. LORTAB ELAXER [Concomitant]
  10. DURAGESIC-100 [Concomitant]

REACTIONS (7)
  - BACTERIAL INFECTION [None]
  - BLOOD CULTURE POSITIVE [None]
  - CHEST X-RAY ABNORMAL [None]
  - NEUTROPENIA [None]
  - PHARYNGOLARYNGEAL PAIN [None]
  - PYREXIA [None]
  - VOMITING [None]
